FAERS Safety Report 17018339 (Version 2)
Quarter: 2019Q4

REPORT INFORMATION
  Report Type: Report from Study
  Country: CN (occurrence: CN)
  Receive Date: 20191111
  Receipt Date: 20191115
  Transmission Date: 20200122
  Serious: Yes (Life-Threatening, Hospitalization, Other)
  Sender: FDA-Public Use
  Company Number: NVSC2019CN021679

PATIENT
  Sex: Male

DRUGS (1)
  1. GLIVEC [Suspect]
     Active Substance: IMATINIB MESYLATE
     Indication: GASTROINTESTINAL STROMAL TUMOUR
     Dosage: 400 MG, QD
     Route: 048
     Dates: start: 20190516

REACTIONS (11)
  - Interstitial lung disease [Unknown]
  - Mobility decreased [Unknown]
  - Cough [Unknown]
  - Oedema peripheral [Recovering/Resolving]
  - Feeding disorder [Unknown]
  - Coma [Unknown]
  - Bronchiectasis [Unknown]
  - Mouth ulceration [Unknown]
  - Pleural effusion [Unknown]
  - Asthenia [Unknown]
  - Drug intolerance [Unknown]
